FAERS Safety Report 5032808-6 (Version None)
Quarter: 2006Q2

REPORT INFORMATION
  Report Type: 
  Country: None (occurrence: None)
  Receive Date: 20060620
  Receipt Date: 20060612
  Transmission Date: 20061013
  Serious: Yes (Hospitalization)
  Sender: FDA-Public Use
  Company Number: COT_0561_2006

PATIENT
  Age: 52 Year
  Sex: Female
  Weight: 87.9978 kg

DRUGS (7)
  1. VENTAVIS [Suspect]
     Indication: PULMONARY HYPERTENSION
     Dosage: 5 MCG 6TO9X/DAY IH
     Route: 055
     Dates: start: 20060104
  2. TRACLEER [Suspect]
     Indication: PULMONARY HYPERTENSION
     Dosage: 125 MG  BID PO
     Route: 048
  3. DIGOXIN [Suspect]
     Indication: HEART RATE IRREGULAR
     Dates: start: 20060501
  4. CARDIZEM [Concomitant]
  5. FUROSEMIDE [Concomitant]
  6. PREDNISONE [Concomitant]
  7. FOSAMAX [Concomitant]

REACTIONS (4)
  - AORTIC STENOSIS [None]
  - CONDITION AGGRAVATED [None]
  - HEADACHE [None]
  - PNEUMONIA [None]
